FAERS Safety Report 7751417-9 (Version None)
Quarter: 2011Q3

REPORT INFORMATION
  Report Type: 
  Country: None (occurrence: None)
  Receive Date: 20110914
  Receipt Date: 20110906
  Transmission Date: 20111222
  Serious: Yes (Life-Threatening, Hospitalization)
  Sender: FDA-Public Use
  Company Number: CA-BAYER-2011-064401

PATIENT
  Age: 79 Year
  Sex: Female
  Weight: 87 kg

DRUGS (9)
  1. NORVASC [Concomitant]
     Dosage: UNK
     Route: 048
     Dates: end: 20110419
  2. FOLIC ACID [Concomitant]
  3. HYDROCHLOROTHIAZIDE [Concomitant]
     Dosage: UNK
  4. ASPIRIN [Concomitant]
  5. VITAMIN D [Concomitant]
  6. VITAMIN B-12 [Concomitant]
  7. AVELOX [Suspect]
     Indication: PNEUMONIA
     Dosage: 400 MG, QD
     Route: 048
     Dates: start: 20110419, end: 20110426
  8. ATACAND [Concomitant]
     Dosage: 8 MG, QD
     Dates: start: 20110401
  9. ATACAND [Concomitant]
     Dosage: 16 MG, QD
     Route: 048
     Dates: start: 20110419

REACTIONS (7)
  - URINE KETONE BODY PRESENT [None]
  - CONFUSIONAL STATE [None]
  - GLUCOSE URINE PRESENT [None]
  - BLOOD CREATININE INCREASED [None]
  - BLOOD POTASSIUM DECREASED [None]
  - POLYDIPSIA [None]
  - POLYURIA [None]
